FAERS Safety Report 4310530-9 (Version None)
Quarter: 2004Q1

REPORT INFORMATION
  Report Type: 
  Country: None (occurrence: None)
  Receive Date: 20040303
  Receipt Date: 20040209
  Transmission Date: 20041129
  Serious: Yes (Other)
  Sender: FDA-Public Use
  Company Number: US-GLAXOSMITHKLINE-A0497197A

PATIENT
  Age: 41 Year
  Sex: Male

DRUGS (7)
  1. COMBIVIR [Suspect]
     Indication: HIV INFECTION
     Dosage: 1TAB TWICE PER DAY
     Route: 048
     Dates: start: 20031101
  2. SUSTIVA [Concomitant]
     Route: 048
     Dates: start: 20031101
  3. ZOLOFT [Concomitant]
     Dates: start: 20031101
  4. CELEBREX [Concomitant]
     Route: 048
     Dates: start: 20040101
  5. ANAPROX [Concomitant]
     Route: 048
     Dates: start: 20040101
  6. TRAZODONE HCL [Concomitant]
     Route: 048
     Dates: start: 20040101
  7. VIAGRA [Concomitant]
     Route: 048
     Dates: start: 20030301

REACTIONS (1)
  - FACIAL PALSY [None]
